FAERS Safety Report 17834209 (Version 1)
Quarter: 2020Q2

REPORT INFORMATION
  Report Type: Spontaneous
  Country: US (occurrence: US)
  Receive Date: 20200528
  Receipt Date: 20200528
  Transmission Date: 20200714
  Serious: Yes (Other)
  Sender: FDA-Public Use
  Company Number: None

PATIENT
  Age: 64 Year
  Sex: Male
  Weight: 103.5 kg

DRUGS (1)
  1. TECNU FIRST AID [Suspect]
     Active Substance: BENZETHONIUM CHLORIDE\LIDOCAINE HYDROCHLORIDE
     Indication: DERMATITIS CONTACT
     Dosage: ?          OTHER STRENGTH:?;OTHER FREQUENCY:NON LISTED;?
     Route: 061
     Dates: start: 20200527, end: 20200528

REACTIONS (2)
  - Pain [None]
  - Burning sensation [None]

NARRATIVE: CASE EVENT DATE: 20200527
